FAERS Safety Report 9135276 (Version 1)
Quarter: 2013Q1

REPORT INFORMATION
  Report Type: Spontaneous
  Country: US (occurrence: US)
  Receive Date: 20130304
  Receipt Date: 20130304
  Transmission Date: 20140127
  Serious: No
  Sender: FDA-Public Use
  Company Number: US-ENDO PHARMACEUTICALS INC.-ENDC20110030

PATIENT
  Sex: Male
  Weight: 86.26 kg

DRUGS (3)
  1. ENDOCET [Suspect]
     Indication: NECK PAIN
     Dosage: 7.5/325 MG
     Route: 048
     Dates: start: 201101, end: 201102
  2. ZINC [Concomitant]
  3. B12 [Concomitant]

REACTIONS (1)
  - Ageusia [Not Recovered/Not Resolved]
